FAERS Safety Report 25864808 (Version 1)
Quarter: 2025Q3

REPORT INFORMATION
  Report Type: Spontaneous
  Country: US (occurrence: None)
  Receive Date: 20250930
  Receipt Date: 20250930
  Transmission Date: 20251020
  Serious: Yes (Life-Threatening, Other)
  Sender: FDA-CTU
  Company Number: None

PATIENT
  Age: 31 Year
  Sex: Female
  Weight: 189 kg

DRUGS (1)
  1. HYDROCHLOROTHIAZIDE [Suspect]
     Active Substance: HYDROCHLOROTHIAZIDE
     Indication: Hypertension

REACTIONS (8)
  - Diarrhoea [None]
  - Nausea [None]
  - Dysphagia [None]
  - Abdominal distension [None]
  - Vomiting [None]
  - Abdominal pain [None]
  - Hypophagia [None]
  - Therapy cessation [None]

NARRATIVE: CASE EVENT DATE: 20240801
